FAERS Safety Report 4570792-X (Version None)
Quarter: 2005Q1

REPORT INFORMATION
  Report Type: 
  Country: None (occurrence: None)
  Receive Date: 20050202
  Receipt Date: 20050112
  Transmission Date: 20050727
  Serious: Yes (Hospitalization)
  Sender: FDA-Public Use
  Company Number: AU_050108314

PATIENT
  Age: 60 Year
  Sex: Male

DRUGS (1)
  1. XIGRIS [Suspect]
     Indication: SEPSIS

REACTIONS (4)
  - CATHETER SITE HAEMORRHAGE [None]
  - CEREBRAL HAEMORRHAGE [None]
  - INJECTION SITE HAEMORRHAGE [None]
  - PLATELET COUNT DECREASED [None]
